FAERS Safety Report 7301831-0 (Version None)
Quarter: 2011Q1

REPORT INFORMATION
  Report Type: 
  Country: None (occurrence: None)
  Receive Date: 20110218
  Receipt Date: 20110208
  Transmission Date: 20110831
  Serious: Yes (Hospitalization)
  Sender: FDA-Public Use
  Company Number: B0700590A

PATIENT
  Age: 47 Year
  Sex: Female

DRUGS (1)
  1. ACICLOVIR [Suspect]
     Indication: HERPES SIMPLEX
     Route: 048

REACTIONS (1)
  - DRUG RESISTANCE [None]
